FAERS Safety Report 24990823 (Version 2)
Quarter: 2025Q1

REPORT INFORMATION
  Report Type: Report from Study
  Country: CN (occurrence: CN)
  Receive Date: 20250220
  Receipt Date: 20250224
  Transmission Date: 20250409
  Serious: Yes (Other)
  Sender: PFIZER
  Company Number: CN-TAKEDA-2023TUS100578

PATIENT
  Age: 43 Year
  Sex: Female
  Weight: 55.3 kg

DRUGS (18)
  1. BRENTUXIMAB VEDOTIN [Suspect]
     Active Substance: BRENTUXIMAB VEDOTIN
     Indication: Hodgkin^s disease nodular sclerosis
     Dosage: 50 MILLIGRAM, Q2WEEKS
     Route: 041
     Dates: start: 20230830
  2. DOXORUBICIN HYDROCHLORIDE [Suspect]
     Active Substance: DOXORUBICIN HYDROCHLORIDE
     Indication: Hodgkin^s disease nodular sclerosis
     Dosage: 20 MILLIGRAM, QD
     Route: 042
     Dates: start: 20230830, end: 20230830
  3. GLYCOPYRROLATE [Concomitant]
     Active Substance: GLYCOPYRROLATE
     Indication: Respiratory tract infection
     Dosage: UNK UNK, BID
     Route: 050
  4. LEVOFLOXACIN [Concomitant]
     Active Substance: LEVOFLOXACIN
     Route: 048
  5. BALOXAVIR MARBOXIL [Concomitant]
     Active Substance: BALOXAVIR MARBOXIL
     Indication: Prophylaxis
     Dosage: 40 MILLIGRAM, QD
     Route: 048
  6. BISOPROLOL FUMARATE [Concomitant]
     Active Substance: BISOPROLOL FUMARATE
     Indication: Prophylaxis
     Dosage: 5 MILLIGRAM, QD
     Route: 048
  7. COENZYME Q10 [Concomitant]
     Active Substance: DIETARY SUPPLEMENT\UBIDECARENONE
     Indication: Prophylaxis
     Dosage: 10 MILLIGRAM, TID
     Route: 048
  8. CETIRIZINE HYDROCHLORIDE [Concomitant]
     Active Substance: CETIRIZINE HYDROCHLORIDE
     Indication: Allergy prophylaxis
     Dosage: 10 MILLIGRAM, TID
     Route: 048
  9. HERBALS\DIAMMONIUM GLYCYRRHIZINATE [Concomitant]
     Active Substance: HERBALS\DIAMMONIUM GLYCYRRHIZINATE
     Indication: Prophylaxis
     Dosage: 100 MILLIGRAM, TID, COATED CAPSULE
     Route: 048
  10. LEUCOGEN [Concomitant]
     Active Substance: LEUCOGEN
     Indication: Prophylaxis
     Dosage: 40 MILLIGRAM, TID
     Route: 048
  11. BICYCLOL [Concomitant]
     Active Substance: BICYCLOL
     Indication: Prophylaxis
     Dosage: 50 MILLIGRAM, TID
     Route: 048
  12. ENTECAVIR [Concomitant]
     Active Substance: ENTECAVIR
     Dosage: 0.5 MILLIGRAM, QD
     Route: 048
  13. ACETYLCYSTEINE [Concomitant]
     Active Substance: ACETYLCYSTEINE
     Dosage: 0.6 GRAM, QD
     Route: 048
  14. LACTULOSE [Concomitant]
     Active Substance: LACTULOSE
     Indication: Laxative supportive care
     Dosage: 20 MILLILITER, QD
     Route: 048
  15. BIFID TRIPLE VIABLE [Concomitant]
     Indication: Prophylaxis against diarrhoea
     Dosage: 210 MILLIGRAM, TID
     Route: 048
  16. DIETARY SUPPLEMENT\HERBALS\MILK THISTLE [Concomitant]
     Active Substance: MILK THISTLE
     Indication: Prophylaxis
     Dosage: 140 MILLIGRAM, TID
     Route: 048
  17. DEXAMETHASONE SODIUM PHOSPHATE [Concomitant]
     Active Substance: DEXAMETHASONE SODIUM PHOSPHATE
     Indication: Mucosal disorder
     Route: 065
     Dates: start: 20240305
  18. ZOLPIDEM TARTRATE [Concomitant]
     Active Substance: ZOLPIDEM TARTRATE
     Indication: Insomnia
     Dosage: 10 MG, 1X/DAY
     Route: 048

REACTIONS (13)
  - Agranulocytosis [Unknown]
  - Arrhythmia [Unknown]
  - Respiratory tract infection [Unknown]
  - Hepatic function abnormal [Unknown]
  - White blood cell count decreased [Unknown]
  - Insomnia [Unknown]
  - Menopausal symptoms [Unknown]
  - Neck pain [Unknown]
  - Muscle strain [Unknown]
  - Cough [Unknown]
  - Blood alkaline phosphatase increased [Unknown]
  - Neutrophil count decreased [Unknown]
  - Oral disorder [Unknown]

NARRATIVE: CASE EVENT DATE: 20230911
